FAERS Safety Report 22300698 (Version 1)
Quarter: 2023Q2

REPORT INFORMATION
  Report Type: Spontaneous
  Country: US (occurrence: US)
  Receive Date: 20230509
  Receipt Date: 20230509
  Transmission Date: 20230722
  Serious: No
  Sender: FDA-Public Use
  Company Number: US-SA-SAC20230501001733

PATIENT
  Age: 67 Year
  Sex: Male
  Weight: 70.7 kg

DRUGS (3)
  1. DUPIXENT [Suspect]
     Active Substance: DUPILUMAB
     Indication: Dermatitis atopic
     Dosage: 300 MG, QOW
     Route: 058
     Dates: start: 202210
  2. PREDNISONE [Concomitant]
     Active Substance: PREDNISONE
     Indication: Dry eye
  3. PREDNISONE [Concomitant]
     Active Substance: PREDNISONE
     Indication: Eye pruritus

REACTIONS (1)
  - Dermatitis atopic [Recovered/Resolved]
